FAERS Safety Report 4469825-0 (Version None)
Quarter: 2004Q4

REPORT INFORMATION
  Report Type: 
  Country: None (occurrence: None)
  Receive Date: 20041008
  Receipt Date: 20040924
  Transmission Date: 20050328
  Serious: Yes (Other)
  Sender: FDA-Public Use
  Company Number: DE-GLAXOSMITHKLINE-D0044799A

PATIENT
  Age: 22 Year
  Sex: Female

DRUGS (2)
  1. LAMICTAL [Suspect]
     Indication: EPILEPSY
     Dosage: 100MG TWICE PER DAY
     Route: 048
     Dates: start: 20031001
  2. CARBAMAZEPINE [Concomitant]
     Route: 048

REACTIONS (11)
  - DIABETES INSIPIDUS [None]
  - DYSARTHRIA [None]
  - GAIT DISTURBANCE [None]
  - HYPOAESTHESIA [None]
  - HYPOPITUITARISM [None]
  - POLLAKIURIA [None]
  - POLYURIA [None]
  - POSITIVE ROMBERGISM [None]
  - PSYCHOMOTOR RETARDATION [None]
  - QUADRIPARESIS [None]
  - REFLEXES ABNORMAL [None]
